FAERS Safety Report 4960294-0 (Version None)
Quarter: 2006Q1

REPORT INFORMATION
  Report Type: 
  Country: None (occurrence: None)
  Receive Date: 20060328
  Receipt Date: 20060310
  Transmission Date: 20060701
  Serious: Yes (Hospitalization)
  Sender: FDA-Public Use
  Company Number: DSA_27905_2006

PATIENT
  Age: 64 Year
  Sex: Male

DRUGS (4)
  1. ENALAPRIL MALEATE [Suspect]
     Indication: HYPERTENSION
     Dosage: 20 MG QD PO
     Route: 048
     Dates: start: 20051114, end: 20051222
  2. INDAPAMIDE [Suspect]
     Indication: ESSENTIAL HYPERTENSION
     Dosage: 1.5 MG QD PO
     Route: 048
     Dates: start: 20051114, end: 20051222
  3. FLUCONAZOLE [Concomitant]
  4. PAROXETINE HC1 [Concomitant]

REACTIONS (4)
  - CYTOLYTIC HEPATITIS [None]
  - HEMIPLEGIA [None]
  - HEPATITIS CHOLESTATIC [None]
  - HEPATITIS TOXIC [None]
